FAERS Safety Report 5622551-4 (Version None)
Quarter: 2008Q1

REPORT INFORMATION
  Report Type: 
  Country: None (occurrence: None)
  Receive Date: 20080114
  Receipt Date: 20071108
  Transmission Date: 20080703
  Serious: Yes (Hospitalization)
  Sender: FDA-Public Use
  Company Number: A03200706429

PATIENT
  Sex: Female

DRUGS (7)
  1. PLAVIX [Suspect]
     Dosage: 75 MG QD - ORAL
     Route: 048
     Dates: start: 20071016, end: 20071001
  2. PLAVIX [Suspect]
     Dosage: 75 MG QD - ORAL
     Route: 048
     Dates: start: 20050101, end: 20071010
  3. ASPIRIN [Suspect]
     Dosage: 325 MG
  4. ACETYLSALICYLIC ACID SRT [Concomitant]
  5. METOPROLOL SUCCINATE [Concomitant]
  6. METFORMIN HCL [Concomitant]
  7. HYDROCHLOROTHIAZIDE [Concomitant]

REACTIONS (3)
  - CEREBRAL HAEMATOMA [None]
  - HAEMORRHAGIC STROKE [None]
  - MENTAL STATUS CHANGES [None]
